FAERS Safety Report 7295949-9 (Version None)
Quarter: 2011Q1

REPORT INFORMATION
  Report Type: 
  Country: None (occurrence: None)
  Receive Date: 20110211
  Receipt Date: 20110211
  Transmission Date: 20110831
  Serious: Yes (Life-Threatening, Hospitalization)
  Sender: FDA-Public Use
  Company Number: None

PATIENT
  Age: 75 Year
  Sex: Female
  Weight: 65.9 kg

DRUGS (2)
  1. FONDAPARINUX [Suspect]
     Indication: DEEP VEIN THROMBOSIS
     Dosage: FONDAPARINUX 2.5MG ONCE A DAY
     Dates: start: 20110109, end: 20110111
  2. ENOXAPARIN [Suspect]
     Indication: DEEP VEIN THROMBOSIS
     Dosage: ENOXAPARIN 60 MG TWICE A DAY
     Dates: start: 20101116, end: 20110103

REACTIONS (2)
  - CONVULSION [None]
  - COMA [None]
